FAERS Safety Report 5814922-8 (Version None)
Quarter: 2008Q3

REPORT INFORMATION
  Report Type: 
  Country: None (occurrence: None)
  Receive Date: 20080718
  Receipt Date: 20080707
  Transmission Date: 20090109
  Serious: Yes (Hospitalization)
  Sender: FDA-Public Use
  Company Number: PHHY2008FR13661

PATIENT
  Sex: Male

DRUGS (13)
  1. TAREG [Suspect]
     Indication: ISCHAEMIC CARDIOMYOPATHY
     Dosage: 80 MG, QD
     Route: 048
  2. ACEBUTOLOL [Suspect]
     Indication: ANGINA PECTORIS
     Dosage: 200 MG, QD
     Route: 048
  3. MOLSIDOMINE [Concomitant]
     Indication: ANGINA PECTORIS
     Dosage: 4 MG, QD
     Route: 048
  4. PRAXILENE [Concomitant]
     Dosage: UNK
     Route: 048
     Dates: end: 20080610
  5. OMEPRAZOLE [Concomitant]
     Dosage: 20 MG, QD
  6. PRAVASTATIN [Concomitant]
     Dosage: UNK
  7. KARDEGIC [Concomitant]
     Dosage: UNK
  8. LORAZEPAM [Concomitant]
     Dosage: UNK
  9. PYOSTACINE [Concomitant]
     Dosage: UNK
     Dates: start: 20080602
  10. MYCOSTER [Concomitant]
     Dosage: UNK
     Dates: start: 20080602
  11. CYTEAL [Concomitant]
     Dosage: UNK
     Dates: start: 20080602
  12. LOCERYL [Concomitant]
     Dosage: UNK
     Dates: start: 20080602
  13. DERMOVAL [Concomitant]
     Dosage: UNK
     Dates: start: 20080602

REACTIONS (11)
  - AORTIC ARTERIOSCLEROSIS [None]
  - BUNDLE BRANCH BLOCK LEFT [None]
  - CARDIAC MURMUR [None]
  - CREATININE RENAL CLEARANCE DECREASED [None]
  - DYSPNOEA [None]
  - EJECTION FRACTION DECREASED [None]
  - HYPOKINESIA [None]
  - LEFT VENTRICULAR DYSFUNCTION [None]
  - MALAISE [None]
  - ROAD TRAFFIC ACCIDENT [None]
  - SYNCOPE [None]
